FAERS Safety Report 11353842 (Version 1)
Quarter: 2015Q3

REPORT INFORMATION
  Report Type: Spontaneous
  Country: US (occurrence: US)
  Receive Date: 20150807
  Receipt Date: 20150807
  Transmission Date: 20151125
  Serious: No
  Sender: FDA-Public Use
  Company Number: US-JNJFOC-20150414147

PATIENT
  Age: 69 Year
  Sex: Female
  Weight: 47.63 kg

DRUGS (3)
  1. PSEUDOEPHEDRINE HYDROCHLORIDE. [Suspect]
     Active Substance: PSEUDOEPHEDRINE HYDROCHLORIDE
     Indication: MULTIPLE ALLERGIES
     Dosage: ONE IN THE MORNING AND ONE AT NIGHT FOR A COUPLE OF WEEKS
     Route: 065
  2. PSEUDOEPHEDRINE HYDROCHLORIDE. [Suspect]
     Active Substance: PSEUDOEPHEDRINE HYDROCHLORIDE
     Indication: SEASONAL ALLERGY
     Dosage: ONE IN THE MORNING AND ONE AT NIGHT FOR A COUPLE OF WEEKS
     Route: 065
  3. CHILDREN^S VITAMINS [Concomitant]
     Dosage: USED FOR YEARS
     Route: 065

REACTIONS (1)
  - Incorrect dose administered [Unknown]
